FAERS Safety Report 11758460 (Version 3)
Quarter: 2016Q3

REPORT INFORMATION
  Report Type: Spontaneous
  Country: US (occurrence: US)
  Receive Date: 20151120
  Receipt Date: 20160722
  Transmission Date: 20161109
  Serious: No
  Sender: FDA-Public Use
  Company Number: US-LUNDBECK-DKLU2005350

PATIENT
  Sex: Female

DRUGS (1)
  1. NORTHERA [Suspect]
     Active Substance: DROXIDOPA
     Indication: PRODUCT USED FOR UNKNOWN INDICATION
     Route: 065
     Dates: end: 20160701

REACTIONS (4)
  - Decreased appetite [Recovering/Resolving]
  - Blood pressure fluctuation [Not Recovered/Not Resolved]
  - Headache [Recovering/Resolving]
  - Malaise [Unknown]
